FAERS Safety Report 15608441 (Version 1)
Quarter: 2018Q4

REPORT INFORMATION
  Report Type: Spontaneous
  Country: FR (occurrence: FR)
  Receive Date: 20181112
  Receipt Date: 20181112
  Transmission Date: 20190205
  Serious: Yes (Hospitalization)
  Sender: FDA-Public Use
  Company Number: FR-PROVELL PHARMACEUTICALS-2058740

PATIENT
  Age: 53 Year
  Sex: Female

DRUGS (3)
  1. EUTHYROX [Suspect]
     Active Substance: LEVOTHYROXINE SODIUM
     Indication: POST PROCEDURAL HYPOTHYROIDISM
     Dates: start: 201803, end: 201805
  2. HERCEPTIN [Concomitant]
     Active Substance: TRASTUZUMAB
  3. TAXOL [Concomitant]
     Active Substance: PACLITAXEL

REACTIONS (4)
  - Dysstasia [None]
  - Blood pressure decreased [None]
  - Stress [None]
  - Nervousness [None]

NARRATIVE: CASE EVENT DATE: 2018
